FAERS Safety Report 9243084 (Version 5)
Quarter: 2014Q2

REPORT INFORMATION
  Report Type: Report from Study
  Country: ES (occurrence: ES)
  Receive Date: 20130419
  Receipt Date: 20140507
  Transmission Date: 20141212
  Serious: Yes (Hospitalization)
  Sender: FDA-Public Use
  Company Number: ES-009507513-1304ESP008981

PATIENT
  Age: 66 Year
  Sex: Male
  Weight: 84 kg

DRUGS (6)
  1. BOCEPREVIR [Suspect]
     Indication: CHRONIC HEPATITIS C
     Dosage: 2400 MG DAILY
     Route: 048
     Dates: start: 20130321, end: 201312
  2. PEGINTRON [Suspect]
     Indication: CHRONIC HEPATITIS C
     Dosage: 120 MICROGRAM  PER WEEK
     Route: 058
     Dates: start: 20130222, end: 201402
  3. RIBAVIRIN [Suspect]
     Indication: CHRONIC HEPATITIS C
     Dosage: 1000 MG/DAY
     Route: 048
     Dates: start: 20130321, end: 201402
  4. CAPOTEN [Concomitant]
  5. ATENOLOL [Concomitant]
  6. RIBAVIRIN [Suspect]
     Indication: HEPATITIS C
     Dosage: BID, TOTAL DAILY DOSE1200MG
     Route: 048
     Dates: start: 20130222, end: 201303

REACTIONS (1)
  - Diabetes mellitus [Recovered/Resolved with Sequelae]
